FAERS Safety Report 18456019 (Version 1)
Quarter: 2020Q4

REPORT INFORMATION
  Report Type: Spontaneous
  Country: DE (occurrence: DE)
  Receive Date: 20201103
  Receipt Date: 20201103
  Transmission Date: 20210114
  Serious: Yes (Hospitalization, Disabling, Other)
  Sender: FDA-Public Use
  Company Number: DE-SA-2020SA303710

PATIENT

DRUGS (16)
  1. TOREM [TORASEMIDE] [Concomitant]
     Active Substance: TORSEMIDE
     Dosage: 10 MG, QD (1-0-0)
     Route: 065
  2. FERRO SANOL [Concomitant]
     Active Substance: FERROUS GLYCINE SULFATE
     Dosage: 100 MG, QD (1-0-0)
     Route: 065
  3. BENALAPRIL [Concomitant]
     Active Substance: ENALAPRIL MALEATE
     Dosage: 20 MG, QD (1-0-0)
     Route: 065
  4. CIRCADIN [Concomitant]
     Active Substance: MELATONIN
     Dosage: 4 MG, QD (0-0-0-1 (20 UHR))
     Route: 065
  5. TARGIN [Concomitant]
     Active Substance: NALOXONE HYDROCHLORIDE\OXYCODONE HYDROCHLORIDE
     Dosage: 1 DF, Q12H (1-0-1)
     Route: 065
  6. VIGANTOLETTEN [Concomitant]
     Active Substance: CHOLECALCIFEROL
     Dosage: 1000 IU, QD (1-0-0)
     Route: 065
  7. NOVALGIN (METAMIZOLE SODIUM) [Concomitant]
     Active Substance: METAMIZOLE SODIUM
     Dosage: 30-30-30-30 DROPS
     Route: 065
  8. IBUPROFEN. [Concomitant]
     Active Substance: IBUPROFEN
     Dosage: 0-0-1
  9. BISOHEXAL [Concomitant]
     Active Substance: BISOPROLOL FUMARATE
     Dosage: 2.5 MG, QD (1/2-0-0)
     Route: 065
  10. PANTOZOLE [Concomitant]
     Active Substance: PANTOPRAZOLE SODIUM
     Dosage: 20 MG, QD (1-0-0)
     Route: 065
  11. CLEXANE [Suspect]
     Active Substance: ENOXAPARIN SODIUM
     Indication: THROMBOSIS PROPHYLAXIS
     Dosage: 6000 IU, Q12H
     Route: 058
  12. AMLODIPINE [Concomitant]
     Active Substance: AMLODIPINE BESYLATE
     Dosage: 5 MG, QD(1-0-0)
     Route: 065
  13. CORDAREX [Concomitant]
     Active Substance: AMIODARONE
     Dosage: 200 MG, QD (1-0-0)
     Route: 065
  14. MARCUMAR [Concomitant]
     Active Substance: PHENPROCOUMON
     Dosage: ACCORDING TO INR, PAUSED SINCE JULY
     Route: 065
     Dates: end: 202007
  15. PALLADON [Concomitant]
     Active Substance: HYDROMORPHONE
     Dosage: 4 MG, QD (1-0-0 (8 UHR))
     Route: 065
  16. PARACETAMOL [Concomitant]
     Active Substance: ACETAMINOPHEN
     Dosage: 500 MG, Q6H
     Route: 065

REACTIONS (1)
  - Cerebellar infarction [Unknown]

NARRATIVE: CASE EVENT DATE: 20200928
